FAERS Safety Report 5193953-8 (Version None)
Quarter: 2006Q4

REPORT INFORMATION
  Report Type: 
  Country: None (occurrence: None)
  Receive Date: 20061222
  Receipt Date: 20061208
  Transmission Date: 20070319
  Serious: Yes (Hospitalization, Other)
  Sender: FDA-Public Use
  Company Number: 2006089756

PATIENT
  Sex: Female

DRUGS (4)
  1. NEURONTIN [Suspect]
     Indication: BIPOLAR DISORDER
  2. ZYPREXA [Concomitant]
  3. LORAZEPAM [Concomitant]
  4. PROZAC [Concomitant]

REACTIONS (8)
  - COMA [None]
  - CONDITION AGGRAVATED [None]
  - DEPRESSION [None]
  - DROOLING [None]
  - DRUG INEFFECTIVE [None]
  - LOSS OF CONSCIOUSNESS [None]
  - OVERDOSE [None]
  - SUICIDE ATTEMPT [None]
